FAERS Safety Report 6790316-6 (Version None)
Quarter: 2010Q2

REPORT INFORMATION
  Report Type: 
  Country: None (occurrence: None)
  Receive Date: 20100624
  Receipt Date: 20100615
  Transmission Date: 20101027
  Serious: Yes (Hospitalization)
  Sender: FDA-Public Use
  Company Number: FR-SANOFI-AVENTIS-2010SA034576

PATIENT
  Age: 45 Year
  Sex: Female

DRUGS (7)
  1. LASIX [Suspect]
     Route: 048
     Dates: start: 20090123, end: 20090622
  2. TRIATEC [Concomitant]
     Route: 048
  3. GARDENAL [Concomitant]
  4. EUPRESSYL [Concomitant]
     Route: 048
  5. HYPERIUM [Concomitant]
     Route: 048
  6. ATENOLOL [Concomitant]
     Route: 048
  7. SOLU-MEDROL [Concomitant]

REACTIONS (6)
  - CONVULSION [None]
  - DEPRESSED LEVEL OF CONSCIOUSNESS [None]
  - HYPERTENSION [None]
  - REVERSIBLE POSTERIOR LEUKOENCEPHALOPATHY SYNDROME [None]
  - VISUAL IMPAIRMENT [None]
  - VOMITING [None]
